FAERS Safety Report 10687294 (Version 1)
Quarter: 2015Q1

REPORT INFORMATION
  Report Type: Spontaneous
  Country: FR (occurrence: FR)
  Receive Date: 20150102
  Receipt Date: 20150102
  Transmission Date: 20150720
  Serious: Yes (Death, Other)
  Sender: FDA-Public Use
  Company Number: FR-BAYER-2014-188693

PATIENT
  Age: 43 Year
  Sex: Female

DRUGS (2)
  1. NEXAVAR [Suspect]
     Active Substance: SORAFENIB
     Indication: GASTROINTESTINAL STROMAL TUMOUR
     Dosage: 400 MG, BID
     Route: 048
  2. NEXAVAR [Suspect]
     Active Substance: SORAFENIB
     Indication: GASTROINTESTINAL STROMAL TUMOUR
     Dosage: 200 MG, BID
     Route: 048

REACTIONS (13)
  - Cholestasis [None]
  - Aspartate aminotransferase increased [None]
  - Alanine aminotransferase increased [None]
  - Pyrexia [None]
  - Decreased appetite [None]
  - Blood bilirubin increased [None]
  - Hepatocellular injury [None]
  - Leukoencephalopathy [Fatal]
  - Abnormal behaviour [Fatal]
  - Inflammation [None]
  - Abdominal pain [None]
  - Hypertension [None]
  - Product use issue [None]
